FAERS Safety Report 7465610-6 (Version None)
Quarter: 2011Q2

REPORT INFORMATION
  Report Type: 
  Country: None (occurrence: None)
  Receive Date: 20110509
  Receipt Date: 20110429
  Transmission Date: 20111010
  Serious: Yes (Hospitalization)
  Sender: FDA-Public Use
  Company Number: FR-SANOFI-AVENTIS-2011SA027567

PATIENT
  Age: 72 Year
  Sex: Female

DRUGS (3)
  1. MULTAQ [Suspect]
     Indication: ATRIAL FIBRILLATION
     Route: 048
     Dates: start: 20100101
  2. CARDENSIEL [Concomitant]
     Dates: end: 20100101
  3. AMIODARONE [Concomitant]
     Dates: end: 20100101

REACTIONS (3)
  - ATRIOVENTRICULAR BLOCK [None]
  - TRANSAMINASES INCREASED [None]
  - HEPATITIS [None]
